FAERS Safety Report 8282315-2 (Version None)
Quarter: 2012Q2

REPORT INFORMATION
  Report Type: 
  Country: None (occurrence: None)
  Receive Date: 20120413
  Receipt Date: 20120413
  Transmission Date: 20120825
  Serious: Yes (Hospitalization)
  Sender: FDA-Public Use
  Company Number: None

PATIENT
  Age: 46 Year
  Sex: Female
  Weight: 61 kg

DRUGS (1)
  1. LISINOPRIL AND HYDROCHLOROTHIAZIDE [Suspect]
     Indication: HYPERTENSION
     Dosage: 10/12.5
     Route: 048
     Dates: start: 20120407, end: 20120407

REACTIONS (5)
  - LIP SWELLING [None]
  - DIZZINESS [None]
  - SELF-MEDICATION [None]
  - HEADACHE [None]
  - SWELLING FACE [None]
